FAERS Safety Report 5390862-6 (Version None)
Quarter: 2007Q3

REPORT INFORMATION
  Report Type: 
  Country: None (occurrence: None)
  Receive Date: 20070716
  Receipt Date: 20070703
  Transmission Date: 20080115
  Serious: Yes (Hospitalization)
  Sender: FDA-Public Use
  Company Number: GXKR2007JP05350

PATIENT
  Age: 69 Year
  Sex: Female

DRUGS (5)
  1. RIFAMPICIN [Suspect]
     Indication: LYMPH NODE TUBERCULOSIS
     Dates: start: 20060919
  2. ISONIAZID [Suspect]
     Indication: LYMPH NODE TUBERCULOSIS
     Dates: start: 20060919
  3. PYRAZINAMIDE [Suspect]
     Indication: LYMPH NODE TUBERCULOSIS
     Dates: start: 20060919
  4. ETHAMBUTOL HYDROCHLORIDE [Suspect]
     Indication: LYMPH NODE TUBERCULOSIS
     Dates: start: 20060919
  5. NICOTINIC ACID [Suspect]
     Indication: LYMPH NODE TUBERCULOSIS
     Dates: start: 20060919

REACTIONS (4)
  - FEMORAL ARTERY ANEURYSM [None]
  - HEPATIC FUNCTION ABNORMAL [None]
  - LOCAL SWELLING [None]
  - VASCULAR PSEUDOANEURYSM [None]
